FAERS Safety Report 12643646 (Version 6)
Quarter: 2017Q1

REPORT INFORMATION
  Report Type: Spontaneous
  Country: US (occurrence: US)
  Receive Date: 20160811
  Receipt Date: 20170227
  Transmission Date: 20170428
  Serious: Yes (Other)
  Sender: FDA-Public Use
  Company Number: PHHY2016US110021

PATIENT
  Sex: Female

DRUGS (3)
  1. ZOFRAN [Suspect]
     Active Substance: ONDANSETRON HYDROCHLORIDE
     Indication: VOMITING IN PREGNANCY
     Route: 042
  2. ZOFRAN [Suspect]
     Active Substance: ONDANSETRON HYDROCHLORIDE
     Indication: VOMITING IN PREGNANCY
     Route: 065
  3. ONDANSETRON [Suspect]
     Active Substance: ONDANSETRON
     Indication: HYPEREMESIS GRAVIDARUM
     Dosage: 4 MG, QD
     Route: 042
     Dates: start: 20100315

REACTIONS (6)
  - Vaginal haemorrhage [Unknown]
  - Product use issue [Unknown]
  - Subchorionic haemorrhage [Unknown]
  - Maternal exposure during pregnancy [Unknown]
  - Abdominal pain [Unknown]
  - Ovarian cyst [Unknown]
